FAERS Safety Report 5522739-7 (Version None)
Quarter: 2007Q4

REPORT INFORMATION
  Report Type: 
  Country: None (occurrence: None)
  Receive Date: 20071120
  Receipt Date: 20071101
  Transmission Date: 20080405
  Serious: No
  Sender: FDA-Public Use
  Company Number: US-BOEHRINGER INGELHEIM PHARMACEUTICALS, INC.-2007-BP-23769BP

PATIENT
  Age: 72 Year
  Sex: Female

DRUGS (6)
  1. SPIRIVA [Suspect]
     Indication: CHRONIC OBSTRUCTIVE PULMONARY DISEASE
     Route: 055
     Dates: start: 20070501
  2. SPIRIVA [Suspect]
     Indication: BRONCHITIS CHRONIC
  3. XANAX [Concomitant]
     Indication: ANXIETY
  4. ALBUTEROL [Concomitant]
     Indication: CHRONIC OBSTRUCTIVE PULMONARY DISEASE
  5. CALAN [Concomitant]
     Indication: HYPERTENSION
  6. AMBIEN [Concomitant]
     Indication: INSOMNIA

REACTIONS (2)
  - CONSTIPATION [None]
  - FREQUENT BOWEL MOVEMENTS [None]
